FAERS Safety Report 7279199-8 (Version None)
Quarter: 2011Q1

REPORT INFORMATION
  Report Type: 
  Country: None (occurrence: None)
  Receive Date: 20110207
  Receipt Date: 20110125
  Transmission Date: 20110831
  Serious: Yes (Other)
  Sender: FDA-Public Use
  Company Number: SG-WATSON-2011-01159

PATIENT
  Age: 50 Year
  Sex: Male

DRUGS (2)
  1. TRIHEXYPHENIDYL HYDROCHLORIDE [Suspect]
     Indication: PARKINSON'S DISEASE
     Dosage: 1 MG, TID
     Route: 065
  2. PIRIBEDIL [Suspect]
     Indication: PARKINSON'S DISEASE
     Dosage: 50 MG, TID
     Route: 065

REACTIONS (3)
  - HALLUCINATION [None]
  - SUICIDAL IDEATION [None]
  - INSOMNIA [None]
